FAERS Safety Report 14336273 (Version 1)
Quarter: 2017Q4

REPORT INFORMATION
  Report Type: Report from Study
  Country: US (occurrence: US)
  Receive Date: 20171229
  Receipt Date: 20171229
  Transmission Date: 20180321
  Serious: Yes (Death, Hospitalization, Other)
  Sender: FDA-Public Use
  Company Number: US-BAYER-2017-215912

PATIENT
  Age: 71 Year
  Sex: Male

DRUGS (4)
  1. ADEMPAS [Suspect]
     Active Substance: RIOCIGUAT
     Indication: PULMONARY ARTERIAL HYPERTENSION
     Dosage: 2 MG, TID
     Route: 048
     Dates: start: 20171109
  2. ADEMPAS [Suspect]
     Active Substance: RIOCIGUAT
     Indication: PULMONARY ARTERIAL HYPERTENSION
     Dosage: 2 MG, TID
     Route: 048
     Dates: start: 20171108
  3. OXYGEN. [Concomitant]
     Active Substance: OXYGEN
     Dosage: 4 LITERS, UNK
     Route: 045
  4. ADEMPAS [Suspect]
     Active Substance: RIOCIGUAT
     Indication: PULMONARY ARTERIAL HYPERTENSION
     Dosage: 0.5 MG, TID
     Route: 048
     Dates: start: 20170807

REACTIONS (12)
  - Adverse drug reaction [None]
  - Gait disturbance [None]
  - Fatigue [None]
  - Pneumonia [None]
  - Asthenia [None]
  - Presyncope [None]
  - Death [Fatal]
  - Sputum discoloured [None]
  - Palpitations [None]
  - Heart rate increased [None]
  - Nasopharyngitis [None]
  - Productive cough [None]

NARRATIVE: CASE EVENT DATE: 2017
